FAERS Safety Report 23732869 (Version 1)
Quarter: 2024Q2

REPORT INFORMATION
  Report Type: Spontaneous
  Country: US (occurrence: None)
  Receive Date: 20240411
  Receipt Date: 20240411
  Transmission Date: 20240715
  Serious: No
  Sender: FDA-Public Use
  Company Number: None

PATIENT
  Age: 64 Year
  Sex: Female
  Weight: 84.8 kg

DRUGS (7)
  1. OXALIPLATIN [Suspect]
     Active Substance: OXALIPLATIN
     Indication: Rectal cancer
     Dosage: OTHER FREQUENCY : 135 MG/HR;?
     Route: 042
  2. dexamethasone injection 10 mg [Concomitant]
  3. dextrose 5% in water infusion 25 mL [Concomitant]
  4. diphenhydramine injection 25 mg [Concomitant]
  5. granisetron injection 1 mg [Concomitant]
  6. prochlorperazine injection 5 mg [Concomitant]
  7. sodium chloride 0.9% flush 10 mL [Concomitant]

REACTIONS (6)
  - Hypoaesthesia [None]
  - Paraesthesia [None]
  - Dyspnoea [None]
  - Respiratory distress [None]
  - Throat tightness [None]
  - Wheezing [None]
